FAERS Safety Report 7213489-X (Version None)
Quarter: 2011Q1

REPORT INFORMATION
  Report Type: 
  Country: None (occurrence: None)
  Receive Date: 20110106
  Receipt Date: 20101222
  Transmission Date: 20110831
  Serious: Yes (Death, Other)
  Sender: FDA-Public Use
  Company Number: PHHY2010US87229

PATIENT
  Sex: Male

DRUGS (1)
  1. FLUDARABINE PHOSPHATE [Suspect]
     Indication: LYMPHOCYTIC LYMPHOMA

REACTIONS (16)
  - SPLENOMEGALY [None]
  - STOMATITIS [None]
  - METABOLIC ACIDOSIS [None]
  - RENAL FAILURE [None]
  - PANCYTOPENIA [None]
  - MULTI-ORGAN FAILURE [None]
  - MENTAL IMPAIRMENT [None]
  - NECROSIS [None]
  - PLASMABLASTIC LYMPHOMA [None]
  - PNEUMONIA [None]
  - LYMPHADENOPATHY [None]
  - BLOOD LACTATE DEHYDROGENASE INCREASED [None]
  - MALNUTRITION [None]
  - HODGKIN'S DISEASE [None]
  - NASOPHARYNGEAL CANCER [None]
  - EPSTEIN-BARR VIRUS ASSOCIATED LYMPHOPROLIFERATIVE DISORDER [None]
